FAERS Safety Report 8153375-4 (Version None)
Quarter: 2012Q1

REPORT INFORMATION
  Report Type: 
  Country: None (occurrence: None)
  Receive Date: 20120221
  Receipt Date: 20120209
  Transmission Date: 20120608
  Serious: Yes (Death)
  Sender: FDA-Public Use
  Company Number: US-ROCHE-1038228

PATIENT
  Sex: Male
  Weight: 75 kg

DRUGS (5)
  1. DEXAMETHASONE [Concomitant]
     Indication: BRAIN OEDEMA
     Route: 048
     Dates: start: 20120109
  2. MORPHINE SULFATE [Concomitant]
     Indication: PAIN
     Dosage: 10-20 MG
     Route: 048
     Dates: start: 20120130
  3. LORAZEPAM [Concomitant]
     Indication: ANXIETY
     Dosage: 1-2 MG
     Route: 048
     Dates: start: 20120130
  4. ZELBORAF [Suspect]
     Indication: METASTATIC MALIGNANT MELANOMA
     Route: 048
     Dates: start: 20120106, end: 20120128
  5. CHLORPROMAZINE HCL [Concomitant]
     Indication: HICCUPS
     Route: 048
     Dates: start: 20120126

REACTIONS (2)
  - CEREBRAL HAEMORRHAGE [None]
  - DEATH [None]
